FAERS Safety Report 23397795 (Version 13)
Quarter: 2025Q1

REPORT INFORMATION
  Report Type: Spontaneous
  Country: IN (occurrence: IN)
  Receive Date: 20240112
  Receipt Date: 20250121
  Transmission Date: 20250409
  Serious: Yes (Other)
  Sender: PFIZER
  Company Number: IN-PFIZER INC-PV202400001584

PATIENT
  Age: 48 Year
  Sex: Male

DRUGS (11)
  1. LORLATINIB [Suspect]
     Active Substance: LORLATINIB
     Indication: Lung neoplasm malignant
     Dosage: 100 MG, 1X/DAY
     Route: 048
     Dates: start: 20231201
  2. LORLATINIB [Suspect]
     Active Substance: LORLATINIB
     Indication: Lung adenocarcinoma
  3. GLIZID [Concomitant]
  4. JANUMET [Concomitant]
     Active Substance: METFORMIN HYDROCHLORIDE\SITAGLIPTIN PHOSPHATE
  5. LIPICARD [ATORVASTATIN] [Concomitant]
  6. ROSUVASTATIN CALCIUM [Concomitant]
     Active Substance: ROSUVASTATIN CALCIUM
  7. SARTEL BETA [Concomitant]
  8. CALCIUM\CHOLECALCIFEROL [Concomitant]
     Active Substance: CALCIUM\CHOLECALCIFEROL
     Dosage: 500 MG, 1X/DAY
     Route: 048
  9. CHOLECALCIFEROL [Concomitant]
     Active Substance: CHOLECALCIFEROL
  10. ZOLEDRONIC ACID [Concomitant]
     Active Substance: ZOLEDRONIC ACID
     Dosage: 4 MG IN 100ML NS I/V OVER 15MIN EVERY 3 MONTHS
     Route: 042
  11. RESTYL [Concomitant]
     Dosage: 0-0-1

REACTIONS (43)
  - Carcinoembryonic antigen increased [Unknown]
  - Dysphonia [Recovering/Resolving]
  - Blood cholesterol increased [Not Recovered/Not Resolved]
  - Gingival swelling [Unknown]
  - Gastrointestinal motility disorder [Recovered/Resolved]
  - Fatigue [Unknown]
  - Asthenia [Recovered/Resolved]
  - Dyspnoea [Recovering/Resolving]
  - Depression [Unknown]
  - Tension [Unknown]
  - Anxiety [Unknown]
  - Haemoglobin decreased [Unknown]
  - Flatulence [Unknown]
  - Abdominal distension [Recovered/Resolved]
  - Muscle atrophy [Unknown]
  - Decreased appetite [Recovered/Resolved]
  - Hunger [Unknown]
  - Delusion [Recovered/Resolved]
  - Abnormal dreams [Recovered/Resolved]
  - Mood swings [Recovered/Resolved]
  - Cough [Recovering/Resolving]
  - Sneezing [Unknown]
  - Blood glucose increased [Recovering/Resolving]
  - Productive cough [Unknown]
  - Sleep disorder [Recovered/Resolved]
  - Sleep talking [Recovered/Resolved]
  - Muscular weakness [Unknown]
  - Gait inability [Recovered/Resolved]
  - Hypersomnia [Unknown]
  - Stress [Unknown]
  - Nasopharyngitis [Recovering/Resolving]
  - Disturbance in attention [Unknown]
  - Blood triglycerides increased [Not Recovered/Not Resolved]
  - Speech disorder [Unknown]
  - Glycosylated haemoglobin increased [Unknown]
  - High density lipoprotein decreased [Unknown]
  - Non-high-density lipoprotein cholesterol increased [Unknown]
  - Blood iron decreased [Unknown]
  - Vitamin D increased [Unknown]
  - Body surface area increased [Unknown]
  - Glucose urine present [Unknown]
  - Insomnia [Recovered/Resolved]
  - Weight fluctuation [Recovering/Resolving]

NARRATIVE: CASE EVENT DATE: 20231230
